FAERS Safety Report 21323363 (Version 17)
Quarter: 2023Q1

REPORT INFORMATION
  Report Type: Report from Study
  Country: PT (occurrence: PT)
  Receive Date: 20220912
  Receipt Date: 20230324
  Transmission Date: 20230418
  Serious: Yes (Death, Hospitalization, Other)
  Sender: FDA-Public Use
  Company Number: PT-ABBVIE-22K-130-4490046-00

PATIENT
  Age: 68 Year
  Sex: Male

DRUGS (21)
  1. CARBIDOPA\LEVODOPA [Suspect]
     Active Substance: CARBIDOPA\LEVODOPA
     Indication: Parkinson^s disease
     Dosage: MORN:7.5CC;MAINT:4.5CC/H;EXTRA:2CC?20 MG PLUS 5 MG
     Route: 050
     Dates: start: 20220801, end: 20220805
  2. CARBIDOPA\LEVODOPA [Suspect]
     Active Substance: CARBIDOPA\LEVODOPA
     Dosage: MORN:10.5CC;MAINT:4.5CC/H;EXTRA:2CC?20 MG PLUS 5 MG
     Route: 050
     Dates: start: 20220907, end: 20220908
  3. CARBIDOPA\LEVODOPA [Suspect]
     Active Substance: CARBIDOPA\LEVODOPA
     Dosage: MORN:13CC, MAINT:5.1CC/H, EXTRA 2CC?20 MG PLUS 5 MG
     Route: 050
     Dates: start: 20220908, end: 20220913
  4. CARBIDOPA\LEVODOPA [Suspect]
     Active Substance: CARBIDOPA\LEVODOPA
     Dosage: 20 MG PLUS 5 MG, 13CC;MAINT:5.4CC/H;EXTRA:2CC
     Route: 050
     Dates: start: 20220916, end: 20220919
  5. CARBIDOPA\LEVODOPA [Suspect]
     Active Substance: CARBIDOPA\LEVODOPA
     Dosage: 20 MG PLUS 5 MG, 14CC;MAINT:5.5CC/H;EXTRA:2CC,?END DATE SEP 2022
     Route: 050
     Dates: start: 20220919, end: 202209
  6. CARBIDOPA\LEVODOPA [Suspect]
     Active Substance: CARBIDOPA\LEVODOPA
     Dosage: 20 MG PLUS 5 MG, 14.5CC;MAINT:5.9CC/H;EXTRA:2CC,?END DATE SEP 2022
     Route: 050
     Dates: start: 20220922, end: 202209
  7. CARBIDOPA\LEVODOPA [Suspect]
     Active Substance: CARBIDOPA\LEVODOPA
     Dosage: 20 MG PLUS 5 MG (VIA PEG), 14.5CC;MAINT:5.5CC/H;EXTRA:2CC
     Route: 050
     Dates: start: 20221021, end: 202211
  8. CARBIDOPA\LEVODOPA [Suspect]
     Active Substance: CARBIDOPA\LEVODOPA
     Dosage: 20 MG PLUS 5 MG, 14CC;MAINT:5.5CC/H;EXTRA:2CC
     Route: 050
     Dates: start: 20220929, end: 202210
  9. CARBIDOPA\LEVODOPA [Suspect]
     Active Substance: CARBIDOPA\LEVODOPA
     Dosage: 20 MG PLUS 5 MG, MORN;18.5CC;MAINT:6.8CC/H;EXTRA:2CC?START AND END DATE OCT 2022
     Route: 050
     Dates: start: 202210, end: 202210
  10. CARBIDOPA\LEVODOPA [Suspect]
     Active Substance: CARBIDOPA\LEVODOPA
     Dosage: 20 MG PLUS 5 MG (VIA PEG), 15.5CC;MAINT:6.6CC/H;EXTRA:2CC
     Route: 050
     Dates: start: 202211
  11. CARBIDOPA\LEVODOPA [Suspect]
     Active Substance: CARBIDOPA\LEVODOPA
     Dosage: 20 MG PLUS 5 MG, MORN;18.5CC;MAINT:7CC/H;EXTRA:2CC?START DATE SEP 2022
     Route: 050
     Dates: start: 202209, end: 20220929
  12. CARBIDOPA\LEVODOPA [Suspect]
     Active Substance: CARBIDOPA\LEVODOPA
     Dosage: 20 MG PLUS 5 MG ,6.3CC;MAINT:2.3CC/H;EXTRA:1CC?END DATE JUL 2022
     Route: 050
     Dates: start: 20220727, end: 202207
  13. CARBIDOPA\LEVODOPA [Suspect]
     Active Substance: CARBIDOPA\LEVODOPA
     Dosage: 20 MG PLUS 5 MG, MORN:7CC;MAINT:4.5CC/H;EXTRA:1.5CC, ?START DATE JUL 2022
     Route: 050
     Dates: start: 202207, end: 20220731
  14. CARBIDOPA\LEVODOPA [Suspect]
     Active Substance: CARBIDOPA\LEVODOPA
     Dosage: 20 MG + 5 MG
     Route: 050
     Dates: start: 202210, end: 20221021
  15. CARBIDOPA\LEVODOPA [Suspect]
     Active Substance: CARBIDOPA\LEVODOPA
     Dosage: 20 MG + 5 MG (VIA PEG)
     Route: 050
     Dates: end: 202303
  16. MIRABEGRON [Concomitant]
     Active Substance: MIRABEGRON
     Indication: Urinary incontinence
     Dosage: 1 TABLET AT 8AM BEFORE DUODOPA
     Route: 048
     Dates: start: 202303
  17. SINEMET CR [Concomitant]
     Active Substance: CARBIDOPA\LEVODOPA
     Indication: Parkinson^s disease
     Dosage: SINEMET 25/100 (LEVODOPA/CARBIDOPA)
     Route: 048
     Dates: start: 20220731
  18. CLOZAPINE [Concomitant]
     Active Substance: CLOZAPINE
     Indication: Product used for unknown indication
     Route: 048
     Dates: start: 20220730, end: 202303
  19. MIDODRINE HYDROCHLORIDE [Concomitant]
     Active Substance: MIDODRINE HYDROCHLORIDE
     Indication: Orthostatic hypotension
     Dosage: 6 TABLET, START DATE TEXT: BEFORE DUODOPA, ?FREQUENCY: 3TABLETS AT 8H 1 TABLET AT 10H30/13H/18H
     Route: 048
     Dates: start: 202303
  20. Levodopa + Carbidopa fairmed [Concomitant]
     Indication: Parkinson^s disease
     Route: 048
     Dates: start: 20220731
  21. GENTAMICIN [Suspect]
     Active Substance: GENTAMICIN
     Indication: Product used for unknown indication
     Route: 042
     Dates: start: 202301

REACTIONS (39)
  - Gastric perforation [Recovered/Resolved]
  - Pneumonia klebsiella [Not Recovered/Not Resolved]
  - Fungal infection [Not Recovered/Not Resolved]
  - Unevaluable event [Not Recovered/Not Resolved]
  - Incorrect route of product administration [Recovered/Resolved]
  - Respiratory tract infection [Recovered/Resolved]
  - Device dislocation [Recovered/Resolved]
  - Productive cough [Recovered/Resolved]
  - Fatigue [Recovered/Resolved]
  - Aggression [Recovered/Resolved]
  - Urine analysis abnormal [Not Recovered/Not Resolved]
  - Sepsis [Fatal]
  - Gait disturbance [Recovering/Resolving]
  - Pneumonia pseudomonal [Not Recovered/Not Resolved]
  - Hallucination [Recovered/Resolved]
  - Confusional state [Not Recovered/Not Resolved]
  - Urine analysis abnormal [Recovered/Resolved]
  - Urinary tract infection [Recovered/Resolved]
  - Urinary sediment [Recovered/Resolved]
  - Agitation [Not Recovered/Not Resolved]
  - Pyuria [Recovered/Resolved]
  - Hallucination, visual [Recovered/Resolved]
  - C-reactive protein increased [Not Recovered/Not Resolved]
  - Urine protein/creatinine ratio abnormal [Not Recovered/Not Resolved]
  - Delusion [Recovered/Resolved]
  - Pyrexia [Recovered/Resolved]
  - Speech disorder [Recovered/Resolved]
  - Leukocyturia [Recovered/Resolved]
  - Incoherent [Not Recovered/Not Resolved]
  - Off label use [Unknown]
  - Urine albumin/creatinine ratio abnormal [Not Recovered/Not Resolved]
  - Gastric perforation [Recovered/Resolved]
  - Urine leukocyte esterase positive [Recovered/Resolved]
  - C-reactive protein increased [Recovered/Resolved]
  - C-reactive protein increased [Recovered/Resolved]
  - General physical health deterioration [Not Recovered/Not Resolved]
  - Drug hypersensitivity [Unknown]
  - Confusional state [Recovered/Resolved]
  - Cardio-respiratory arrest [Unknown]

NARRATIVE: CASE EVENT DATE: 20220701
